FAERS Safety Report 4424466-6 (Version None)
Quarter: 2004Q3

REPORT INFORMATION
  Report Type: 
  Country: None (occurrence: None)
  Receive Date: 20040812
  Receipt Date: 20040712
  Transmission Date: 20050211
  Serious: Yes (Hospitalization)
  Sender: FDA-Public Use
  Company Number: US-GLAXOSMITHKLINE-A0517861A

PATIENT
  Age: 80 Year
  Sex: Male

DRUGS (1)
  1. AVANDIA [Suspect]
     Indication: DIABETES MELLITUS NON-INSULIN-DEPENDENT
     Dosage: 8MG PER DAY
     Route: 048

REACTIONS (4)
  - CARDIOMEGALY [None]
  - DYSPNOEA [None]
  - PERICARDIAL EFFUSION [None]
  - PLEURAL EFFUSION [None]
